FAERS Safety Report 6609407-5 (Version None)
Quarter: 2010Q1

REPORT INFORMATION
  Report Type: 
  Country: None (occurrence: None)
  Receive Date: 20100224
  Receipt Date: 20100219
  Transmission Date: 20100710
  Serious: Yes (Other)
  Sender: FDA-Public Use
  Company Number: 2010SP010307

PATIENT
  Age: 27 Year
  Sex: Female

DRUGS (5)
  1. INTRON A [Suspect]
     Indication: MALIGNANT MELANOMA
     Dosage: 3 KIU; QW; SC
     Route: 058
     Dates: start: 20091014, end: 20091202
  2. DAFALGAN (PARACETAMOL /00020001/) [Suspect]
     Indication: DRUG USE FOR UNKNOWN INDICATION
     Dosage: 4 DF; QD; PO
     Route: 048
     Dates: start: 20091014, end: 20091202
  3. CERAZETTE [Concomitant]
  4. GESTODENE AND ETHINYL ESTRADIOL [Concomitant]
  5. TARDYFERON [Concomitant]

REACTIONS (2)
  - CYTOLYTIC HEPATITIS [None]
  - DEPRESSION [None]
